FAERS Safety Report 15156938 (Version 1)
Quarter: 2018Q3

REPORT INFORMATION
  Report Type: Spontaneous
  Country: US (occurrence: US)
  Receive Date: 20180718
  Receipt Date: 20180718
  Transmission Date: 20181010
  Serious: Yes (Other)
  Sender: FDA-Public Use
  Company Number: US-009507513-1005USA01567

PATIENT
  Age: 21 Year
  Sex: Female

DRUGS (4)
  1. PREZISTA [Suspect]
     Active Substance: DARUNAVIR ETHANOLATE
     Dosage: 1200 MG, QD
     Route: 048
     Dates: start: 20100322
  2. TRUVADA [Suspect]
     Active Substance: EMTRICITABINE\TENOFOVIR DISOPROXIL FUMARATE
     Dosage: 1 DF, QD
     Route: 048
     Dates: start: 20100322
  3. NORVIR [Suspect]
     Active Substance: RITONAVIR
     Dosage: 200 MG, QD
     Route: 048
     Dates: start: 20100322
  4. ISENTRESS [Suspect]
     Active Substance: RALTEGRAVIR POTASSIUM
     Dosage: 800 MG, QD
     Route: 048
     Dates: start: 20100322

REACTIONS (4)
  - Oligohydramnios [Unknown]
  - Premature rupture of membranes [Unknown]
  - Exposure during pregnancy [Recovered/Resolved]
  - Premature labour [Unknown]

NARRATIVE: CASE EVENT DATE: 20100322
